FAERS Safety Report 7606083-X (Version None)
Quarter: 2011Q3

REPORT INFORMATION
  Report Type: 
  Country: None (occurrence: None)
  Receive Date: 20110705
  Receipt Date: 20110620
  Transmission Date: 20111222
  Serious: Yes (Life-Threatening)
  Sender: FDA-Public Use
  Company Number: 2011MA007781

PATIENT
  Age: 42 Year
  Sex: Female

DRUGS (2)
  1. METHYLENE BLUE [Concomitant]
  2. VENLAFAXINE HYDROCHLORIDE [Suspect]
     Indication: DEPRESSION

REACTIONS (5)
  - AGITATION [None]
  - CONFUSIONAL STATE [None]
  - CLONUS [None]
  - HYPERREFLEXIA [None]
  - HYPOTENSION [None]
